FAERS Safety Report 4289109-3 (Version None)
Quarter: 2004Q1

REPORT INFORMATION
  Report Type: 
  Country: None (occurrence: None)
  Receive Date: 20040209
  Receipt Date: 20040209
  Transmission Date: 20041129
  Serious: Yes (Other)
  Sender: FDA-Public Use
  Company Number: None

PATIENT
  Sex: Female
  Weight: 54.4316 kg

DRUGS (1)
  1. LUBRIDERM MOISTURIZING PFIZER [Suspect]
     Indication: DRY SKIN
     Dosage: QUARTER SIZE BID CUTANEOUS
     Route: 003
     Dates: start: 20040204, end: 20040204

REACTIONS (3)
  - APPLICATION SITE ERYTHEMA [None]
  - APPLICATION SITE PRURITUS [None]
  - APPLICATION SITE SWELLING [None]
